FAERS Safety Report 6839903-7 (Version None)
Quarter: 2010Q2

REPORT INFORMATION
  Report Type: 
  Country: None (occurrence: None)
  Receive Date: 20100629
  Receipt Date: 20100407
  Transmission Date: 20101027
  Serious: Yes (Other)
  Sender: FDA-Public Use
  Company Number: US-WYE-H14494010

PATIENT
  Age: 85 Year
  Sex: Female
  Weight: 67.19 kg

DRUGS (5)
  1. PRISTIQ [Suspect]
     Indication: DEPRESSION
     Dosage: 50 MG 1X PER 1 DAY, ORAL
     Route: 048
     Dates: start: 20100101, end: 20100425
  2. ENALAPRIL MALEATE [Concomitant]
  3. LIPITOR [Concomitant]
  4. BUMETANIDE [Concomitant]
  5. SYNTHROID [Concomitant]

REACTIONS (3)
  - DEPRESSION [None]
  - DIZZINESS [None]
  - DRY MOUTH [None]
